FAERS Safety Report 7935433-X (Version None)
Quarter: 2011Q4

REPORT INFORMATION
  Report Type: 
  Country: None (occurrence: None)
  Receive Date: 20111122
  Receipt Date: 20111117
  Transmission Date: 20120403
  Serious: Yes (Other)
  Sender: FDA-Public Use
  Company Number: US-JNJFOC-20111107805

PATIENT
  Sex: Male

DRUGS (1)
  1. STELARA [Suspect]
     Indication: PSORIASIS
     Route: 058
     Dates: start: 20111114

REACTIONS (7)
  - DISORIENTATION [None]
  - DYSPNOEA [None]
  - AMNESIA [None]
  - CHILLS [None]
  - ASTHENIA [None]
  - HEADACHE [None]
  - PAIN [None]
